FAERS Safety Report 22946610 (Version 4)
Quarter: 2023Q4

REPORT INFORMATION
  Report Type: Report from Study
  Country: US (occurrence: US)
  Receive Date: 20230915
  Receipt Date: 20231220
  Transmission Date: 20240110
  Serious: Yes (Hospitalization, Other)
  Sender: FDA-Public Use
  Company Number: US-ABBVIE-5406276

PATIENT
  Sex: Male
  Weight: 103 kg

DRUGS (12)
  1. VENCLEXTA [Suspect]
     Active Substance: VENETOCLAX
     Indication: Chronic lymphocytic leukaemia
     Dosage: FORM STRENGTH: 100 MG, LAST ADMIN DATE : 2023
     Route: 048
     Dates: start: 20230306
  2. VENCLEXTA [Suspect]
     Active Substance: VENETOCLAX
     Indication: Chronic lymphocytic leukaemia
     Dosage: FORM STRENGTH: 100 MG, LAST ADMIN DATE 2023
     Route: 048
     Dates: start: 20230128
  3. VENCLEXTA [Suspect]
     Active Substance: VENETOCLAX
     Indication: Chronic lymphocytic leukaemia
     Dosage: FORM STRENGTH: 100 MG
     Route: 048
     Dates: start: 202302, end: 202302
  4. VENCLEXTA [Suspect]
     Active Substance: VENETOCLAX
     Indication: Chronic lymphocytic leukaemia
     Dosage: FORM STRENGTH: 100 MG, FIRST ADMIN DATE: 2023
     Route: 048
     Dates: end: 202308
  5. VENCLEXTA [Suspect]
     Active Substance: VENETOCLAX
     Indication: Chronic lymphocytic leukaemia
     Dosage: FORM STRENGTH: 100 MG, FIRST ADMIN DATE 2023
     Route: 048
     Dates: end: 20230912
  6. LINEZOLID [Concomitant]
     Active Substance: LINEZOLID
     Indication: Product used for unknown indication
     Dosage: FORM STRENGTH: 600 MG?FREQUENCY TEXT: 7 DAYS
     Dates: start: 202309, end: 202309
  7. ELIQUIS [Concomitant]
     Active Substance: APIXABAN
     Indication: Atrial fibrillation
     Dosage: FORM STRENGTH: 5 MILLILITRE(S)
  8. METOPROLOL [Concomitant]
     Active Substance: METOPROLOL
     Indication: Product used for unknown indication
  9. AMIODARONE [Suspect]
     Active Substance: AMIODARONE
     Indication: Product used for unknown indication
     Dosage: DRUG START DATE JAN OR FEB 2023
     Route: 065
     Dates: start: 202301, end: 20230820
  10. Covid-19 vaccine [Concomitant]
     Indication: COVID-19 immunisation
     Dosage: ONE IN ONCE
     Route: 030
  11. ZOSTER [Concomitant]
     Indication: Immunisation
     Dosage: SHINGLES VACCINE
  12. INFLUENZA VIRUS VACCINE [Concomitant]
     Active Substance: INFLUENZA VIRUS VACCINE
     Indication: Influenza immunisation

REACTIONS (8)
  - COVID-19 pneumonia [Recovering/Resolving]
  - Drug interaction [Unknown]
  - Acute respiratory failure [Unknown]
  - Asthenia [Recovering/Resolving]
  - Pneumonia staphylococcal [Recovering/Resolving]
  - Pneumonia fungal [Recovering/Resolving]
  - Deafness unilateral [Not Recovered/Not Resolved]
  - Arthropod scratch [Unknown]

NARRATIVE: CASE EVENT DATE: 20230101
